FAERS Safety Report 6896750-8 (Version None)
Quarter: 2010Q3

REPORT INFORMATION
  Report Type: 
  Country: None (occurrence: None)
  Receive Date: 20100729
  Receipt Date: 20100716
  Transmission Date: 20110219
  Serious: Yes (Other)
  Sender: FDA-Public Use
  Company Number: 230302J10BRA

PATIENT
  Age: 67 Year
  Sex: Female

DRUGS (9)
  1. REBIF [Suspect]
     Indication: RELAPSING-REMITTING MULTIPLE SCLEROSIS
     Dosage: 44 MCG, 3 IN 1 WK, SUBCUTANEOUS
     Route: 058
     Dates: start: 20020219, end: 20091001
  2. REBIF [Suspect]
     Indication: RELAPSING-REMITTING MULTIPLE SCLEROSIS
     Dosage: 44 MCG, 3 IN 1 WK, SUBCUTANEOUS
     Route: 058
     Dates: start: 20100319
  3. B COMPLEX (NICOTINAM W/PYRIDOXI HCL/RIBOFL/THIAM.HCL) [Concomitant]
  4. CAPTOPRIL [Concomitant]
  5. PROPRANOLOL [Concomitant]
  6. OMEPRAZOLE [Concomitant]
  7. IMOSEC (LOPERAMIDE) [Concomitant]
  8. CITALOPRAM HYDROBROMIDE [Concomitant]
  9. LEXOTAN (BROMAZEPAM) [Concomitant]

REACTIONS (5)
  - INJECTION SITE NODULE [None]
  - INJECTION SITE PAIN [None]
  - MALIGNANT ANORECTAL NEOPLASM [None]
  - NAUSEA [None]
  - VOMITING [None]
